FAERS Safety Report 18683957 (Version 2)
Quarter: 2022Q2

REPORT INFORMATION
  Report Type: Spontaneous
  Country: US (occurrence: US)
  Receive Date: 20201230
  Receipt Date: 20220530
  Transmission Date: 20220721
  Serious: Yes (Hospitalization)
  Sender: FDA-Public Use
  Company Number: US-SA-2020SA369439

PATIENT
  Age: 71 Year
  Sex: Female

DRUGS (2)
  1. TRIAMCINOLONE ACETONIDE [Suspect]
     Active Substance: TRIAMCINOLONE ACETONIDE
     Indication: Oesophageal stenosis
     Dosage: FIRST INTRALESIONAL STEROID INJECTION (TRIAMCINOLONE 80 MG) COMBINED WITH SAVARY DILATION TO 12.8MM
     Route: 026
  2. AZATHIOPRINE [Concomitant]
     Active Substance: AZATHIOPRINE
     Indication: Sjogren^s syndrome

REACTIONS (4)
  - Abscess neck [Unknown]
  - Infection [Unknown]
  - Swelling [Unknown]
  - Odynophagia [Unknown]
